FAERS Safety Report 8172422-7 (Version None)
Quarter: 2012Q1

REPORT INFORMATION
  Report Type: 
  Country: None (occurrence: None)
  Receive Date: 20120224
  Receipt Date: 20120224
  Transmission Date: 20120608
  Serious: Yes (Life-Threatening, Hospitalization)
  Sender: FDA-Public Use
  Company Number: None

PATIENT
  Age: 78 Year
  Sex: Male
  Weight: 88.8143 kg

DRUGS (26)
  1. ADVAIR DISKUS 100/50 [Concomitant]
  2. ZOFRAN [Concomitant]
  3. FLOMAX [Concomitant]
  4. CALCIUM [Concomitant]
  5. LIDODERM [Concomitant]
  6. CISPLATIN [Suspect]
     Indication: LUNG NEOPLASM MALIGNANT
     Dosage: 60MG/M2 / Q21 DAYS/ IV
     Route: 042
     Dates: start: 20120131
  7. COMPAZINE [Concomitant]
  8. LORAZEPAM [Concomitant]
  9. VITAMIN D [Concomitant]
  10. SUCRALFATE [Concomitant]
  11. AMARYL [Concomitant]
  12. NEURONTIN [Concomitant]
  13. MILES MAGIC MOUTHWASH [Concomitant]
  14. FOLIC ACID [Concomitant]
  15. MIRALAX [Concomitant]
  16. DEXAMETHASONE [Concomitant]
  17. PREDNISONE TAB [Concomitant]
  18. VORINISTAT [Suspect]
     Indication: LUNG NEOPLASM MALIGNANT
     Dosage: 200MG/1DAILY M,W.F/ORAL
     Route: 048
     Dates: start: 20120201
  19. LOVENOX [Concomitant]
  20. CARAFATE [Concomitant]
  21. FISH OIL [Concomitant]
  22. TAMSILOSIN HCL [Concomitant]
  23. SENNA [Concomitant]
  24. ZOLOFT [Concomitant]
  25. PRILOSEC [Concomitant]
  26. PREDNISONE TAB [Concomitant]

REACTIONS (5)
  - MYOCARDIAL INFARCTION [None]
  - SEPSIS [None]
  - DEVICE RELATED INFECTION [None]
  - URINARY TRACT INFECTION [None]
  - HYPOTENSION [None]
